FAERS Safety Report 4889483-0 (Version None)
Quarter: 2006Q1

REPORT INFORMATION
  Report Type: 
  Country: None (occurrence: None)
  Receive Date: 20060120
  Receipt Date: 20060110
  Transmission Date: 20060701
  Serious: Yes (Hospitalization)
  Sender: FDA-Public Use
  Company Number: 2005BI008667

PATIENT
  Age: 54 Year
  Sex: Female

DRUGS (7)
  1. AVONEX [Suspect]
     Indication: MULTIPLE SCLEROSIS
     Dosage: SEE IMAGE
     Route: 030
     Dates: start: 20030301, end: 20050201
  2. AVONEX [Suspect]
     Indication: MULTIPLE SCLEROSIS
     Dosage: SEE IMAGE
     Route: 030
     Dates: start: 20050101
  3. ZOLOFT [Concomitant]
  4. VITAMIN B-12 [Concomitant]
  5. PROVIGIL [Concomitant]
  6. NEURONTIN [Concomitant]
  7. RED YEAST RICE [Concomitant]

REACTIONS (6)
  - COGNITIVE DISORDER [None]
  - COLITIS [None]
  - CROHN'S DISEASE [None]
  - DEPRESSION [None]
  - HEPATIC ENZYME INCREASED [None]
  - WEIGHT DECREASED [None]
